FAERS Safety Report 21296569 (Version 3)
Quarter: 2022Q3

REPORT INFORMATION
  Report Type: Spontaneous
  Country: US (occurrence: US)
  Receive Date: 20220906
  Receipt Date: 20220919
  Transmission Date: 20221027
  Serious: Yes (Hospitalization, Other)
  Sender: FDA-Public Use
  Company Number: US-BRISTOL-MYERS SQUIBB COMPANY-2022-099716

PATIENT
  Age: 81 Year
  Sex: Female

DRUGS (1)
  1. REVLIMID [Suspect]
     Active Substance: LENALIDOMIDE
     Indication: Follicular lymphoma
     Dosage: DOSE : UNAVAILABLE;     FREQ : 20 MG QD X 21 DAYS 7 DAYS OFF?21 DAYS OUT OF 28 DAYS CYCLE
     Route: 048
     Dates: start: 20220106

REACTIONS (5)
  - Pneumonia [Unknown]
  - Thrombosis [Unknown]
  - Pulmonary oedema [Unknown]
  - Asthenia [Unknown]
  - Decreased appetite [Unknown]
